FAERS Safety Report 24039107 (Version 1)
Quarter: 2024Q3

REPORT INFORMATION
  Report Type: Spontaneous
  Country: GB (occurrence: GB)
  Receive Date: 20240702
  Receipt Date: 20240702
  Transmission Date: 20241017
  Serious: Yes (Other)
  Sender: TEVA
  Company Number: GB-MHRA-TPP37044927C16176816YC1719306210825

PATIENT
  Age: 39 Year
  Sex: Female

DRUGS (1)
  1. GABAPENTIN [Suspect]
     Active Substance: GABAPENTIN
     Route: 048
     Dates: start: 20240625

REACTIONS (1)
  - Intrusive thoughts [Recovered/Resolved]

NARRATIVE: CASE EVENT DATE: 20240625
